FAERS Safety Report 8422964-1 (Version None)
Quarter: 2012Q2

REPORT INFORMATION
  Report Type: 
  Country: None (occurrence: None)
  Receive Date: 20120608
  Receipt Date: 20120601
  Transmission Date: 20120825
  Serious: Yes (Hospitalization, Other)
  Sender: FDA-Public Use
  Company Number: RU-GLAXOSMITHKLINE-B0806331A

PATIENT
  Age: 26 Year
  Sex: Female
  Weight: 80 kg

DRUGS (1)
  1. PAXIL [Suspect]
     Indication: DEPRESSION
     Dosage: 20MG PER DAY
     Route: 048
     Dates: start: 20120204, end: 20120520

REACTIONS (7)
  - DEPERSONALISATION [None]
  - DIARRHOEA [None]
  - NAUSEA [None]
  - PARAESTHESIA [None]
  - DEREALISATION [None]
  - ANXIETY [None]
  - DIZZINESS [None]
